FAERS Safety Report 5196500-X (Version None)
Quarter: 2006Q4

REPORT INFORMATION
  Report Type: 
  Country: None (occurrence: None)
  Receive Date: 20061227
  Receipt Date: 20061211
  Transmission Date: 20070319
  Serious: Yes (Hospitalization)
  Sender: FDA-Public Use
  Company Number: GXKR2006GB08102

PATIENT
  Age: 84 Year
  Sex: Female

DRUGS (16)
  1. ASPIRIN [Suspect]
     Dosage: 75 MG, QD, ORAL
     Route: 048
     Dates: end: 20061015
  2. DICLOFENAC (NGX) (DICOLFENAC) [Suspect]
     Dosage: 50 MG, TID, ORAL
     Route: 048
     Dates: end: 20061015
  3. CO-CODAMOL (CODEINE PHOSPHATE, PARACETAMOL) [Concomitant]
  4. DONEPEZIL HCL [Concomitant]
  5. FENTANYL [Concomitant]
  6. FLUOXETINE [Concomitant]
  7. FUROSEMIDE [Concomitant]
  8. GABAPENTIN [Concomitant]
  9. ISOSORBIDE MONONITRATE [Concomitant]
  10. LEVOTHYROXINE SODIUM [Concomitant]
  11. LOSARTAN POTASSIUM [Concomitant]
  12. MEBEVERINE (MEBEVERINE) [Concomitant]
  13. NICORANDIL (NICORANDIL) [Concomitant]
  14. SIMVASTATIN (SIVASTATIN) [Concomitant]
  15. SPIRONOLACTONE [Concomitant]
  16. ZOPICLONE (ZOPICLONE) [Concomitant]

REACTIONS (4)
  - ANAEMIA [None]
  - GASTROINTESTINAL HAEMORRHAGE [None]
  - LETHARGY [None]
  - PALLOR [None]
